FAERS Safety Report 6384333-8 (Version None)
Quarter: 2009Q4

REPORT INFORMATION
  Report Type: 
  Country: None (occurrence: None)
  Receive Date: 20091001
  Receipt Date: 20090925
  Transmission Date: 20100525
  Serious: Yes (Other)
  Sender: FDA-Public Use
  Company Number: FR-BRISTOL-MYERS SQUIBB COMPANY-14793657

PATIENT
  Age: 63 Year
  Sex: Female

DRUGS (3)
  1. REYATAZ [Suspect]
     Indication: HIV INFECTION
     Dates: start: 20050901, end: 20090904
  2. TRUVADA [Suspect]
     Indication: HIV INFECTION
     Dates: start: 20050901, end: 20090904
  3. NORVIR [Suspect]
     Indication: HIV INFECTION
     Dates: start: 20050901, end: 20090904

REACTIONS (2)
  - FANCONI SYNDROME [None]
  - OSTEOPOROSIS [None]
